FAERS Safety Report 7337133-6 (Version None)
Quarter: 2011Q1

REPORT INFORMATION
  Report Type: 
  Country: None (occurrence: None)
  Receive Date: 20110308
  Receipt Date: 20110222
  Transmission Date: 20110831
  Serious: Yes (Hospitalization, Other)
  Sender: FDA-Public Use
  Company Number: US-RANBAXY-2011RR-41510

PATIENT
  Sex: Female

DRUGS (11)
  1. LEVAQUIN [Suspect]
     Indication: CHRONIC OBSTRUCTIVE PULMONARY DISEASE
     Dosage: 500 MG, UNK
     Dates: start: 20001130
  2. LEVAQUIN [Suspect]
     Dosage: 500 MG, UNK
     Dates: start: 20001205
  3. CIPROFLOXACIN [Suspect]
     Dosage: 500 MG, UNK
     Dates: start: 20110111
  4. PREDNISOLONE [Suspect]
     Dosage: 10 MG, UNK
     Dates: start: 20101004
  5. CIPROFLOXACIN [Suspect]
     Dosage: 250 MG, UNK
     Dates: start: 20110201
  6. CIPROFLOXACIN [Suspect]
     Indication: INFECTION
     Dosage: 750 MG, UNK
     Route: 065
     Dates: start: 20021022
  7. PREDNISOLONE [Suspect]
     Dosage: 10 MG, UNK
     Dates: start: 20000504
  8. PREDNISOLONE [Suspect]
     Dosage: 10 MG, UNK
     Dates: start: 20110107
  9. TEQUIN [Suspect]
     Indication: INFECTION
     Dosage: UNK
     Route: 065
     Dates: start: 20020101
  10. PREDNISOLONE [Suspect]
     Indication: ANTIINFLAMMATORY THERAPY
     Dosage: UNK MG, UNK
     Route: 065
     Dates: start: 20000501, end: 20100101
  11. LEVAQUIN [Suspect]
     Dosage: UNK
     Dates: start: 20080901, end: 20081101

REACTIONS (3)
  - ARTHRALGIA [None]
  - ROTATOR CUFF SYNDROME [None]
  - TENDON RUPTURE [None]
